FAERS Safety Report 25191070 (Version 1)
Quarter: 2025Q2

REPORT INFORMATION
  Report Type: Other
  Country: US (occurrence: US)
  Receive Date: 20250411
  Receipt Date: 20250411
  Transmission Date: 20250717
  Serious: Yes (Other)
  Sender: ESTEVE
  Company Number: US-Esteve Pharmaceuticals SA-2174686

PATIENT
  Age: 56 Year
  Sex: Female

DRUGS (13)
  1. LYSODREN [Suspect]
     Active Substance: MITOTANE
     Indication: Adrenal gland cancer
     Dates: start: 20240124
  2. LYSODREN [Suspect]
     Active Substance: MITOTANE
  3. ROSUVASTATIN [Concomitant]
     Active Substance: ROSUVASTATIN
  4. PROCHLORPER [Concomitant]
  5. PREDNISONE [Concomitant]
     Active Substance: PREDNISONE
  6. PREDNISONE [Concomitant]
     Active Substance: PREDNISONE
  7. ONDANSETRON [Concomitant]
     Active Substance: ONDANSETRON
  8. MAGNESIUM [Concomitant]
     Active Substance: MAGNESIUM
  9. FLUDROCORTISONE [Concomitant]
     Active Substance: FLUDROCORTISONE
  10. DEXAMETH PHO [Concomitant]
  11. CRESTOR [Concomitant]
     Active Substance: ROSUVASTATIN CALCIUM
  12. BOTOX COSMETIC [Concomitant]
     Active Substance: ONABOTULINUMTOXINA
  13. ADVIL [Concomitant]
     Active Substance: IBUPROFEN

REACTIONS (4)
  - Adrenal insufficiency [Not Recovered/Not Resolved]
  - Hyponatraemia [Not Recovered/Not Resolved]
  - Primary hyperaldosteronism [Not Recovered/Not Resolved]
  - Hyperlipidaemia [Not Recovered/Not Resolved]
